FAERS Safety Report 8811110 (Version 1)
Quarter: 2012Q4

REPORT INFORMATION
  Report Type: Spontaneous
  Country: DK (occurrence: None)
  Receive Date: 20120921
  Receipt Date: 20120921
  Transmission Date: 20130627
  Serious: Yes (Disabling)
  Sender: FDA-Public Use
  Company Number: 2012MA011286

PATIENT
  Age: 23 Year
  Sex: Female

DRUGS (3)
  1. METFORMIN HYDROCHLORIDE EXTENDED RELEASE [Suspect]
     Indication: POLYCYSTIC OVARIAN SYNDROME
     Route: 048
     Dates: start: 20120825
  2. CITALOPRAM HYDROBROMIDE [Suspect]
     Route: 048
     Dates: start: 20110706
  3. COLECALCIFEROL [Suspect]
     Route: 048
     Dates: start: 20120828

REACTIONS (1)
  - Sinus headache [None]
